FAERS Safety Report 12647971 (Version 1)
Quarter: 2016Q3

REPORT INFORMATION
  Report Type: Spontaneous
  Country: US (occurrence: None)
  Receive Date: 20160811
  Receipt Date: 20160811
  Transmission Date: 20161109
  Serious: Yes (Hospitalization)
  Sender: FDA-Public Use
  Company Number: None

PATIENT
  Age: 20 Year
  Sex: Female

DRUGS (4)
  1. CAYSTON [Concomitant]
     Active Substance: AZTREONAM
  2. COMPLETE FORM [Concomitant]
  3. TOBI PODHALER [Suspect]
     Active Substance: TOBRAMYCIN
     Indication: CYSTIC FIBROSIS
     Route: 055
     Dates: start: 20151229, end: 20160104
  4. PULMOZYME [Concomitant]
     Active Substance: DORNASE ALFA

REACTIONS (1)
  - Hospitalisation [None]

NARRATIVE: CASE EVENT DATE: 20160711
